FAERS Safety Report 13176693 (Version 1)
Quarter: 2017Q1

REPORT INFORMATION
  Report Type: Report from Study
  Country: JP (occurrence: JP)
  Receive Date: 20170201
  Receipt Date: 20170201
  Transmission Date: 20170428
  Serious: Yes (Hospitalization)
  Sender: FDA-Public Use
  Company Number: JP-EISAI MEDICAL RESEARCH-EC-2017-024443

PATIENT
  Age: 44 Year
  Sex: Female
  Weight: 74 kg

DRUGS (26)
  1. HALAVEN [Suspect]
     Active Substance: ERIBULIN MESYLATE
     Indication: BREAST CANCER RECURRENT
     Route: 041
     Dates: start: 20151228, end: 20160201
  2. BROTIZOLAM [Concomitant]
     Active Substance: BROTIZOLAM
  3. BELSOMRA [Concomitant]
     Active Substance: SUVOREXANT
  4. LECICARBON [Concomitant]
     Active Substance: SODIUM BICARBONATE\SODIUM PHOSPHATE, MONOBASIC
  5. PICOSULFATE NA [Concomitant]
  6. PICIBANIL [Concomitant]
     Active Substance: OK-432
  7. HALAVEN [Suspect]
     Active Substance: ERIBULIN MESYLATE
     Route: 041
     Dates: start: 20150215, end: 20160502
  8. ROHYPNOL [Concomitant]
     Active Substance: FLUNITRAZEPAM
  9. THYRADIN [Concomitant]
     Active Substance: LEVOTHYROXINE
  10. AUGMENTIN [Concomitant]
     Active Substance: AMOXICILLIN\CLAVULANATE POTASSIUM
  11. LASIX [Concomitant]
     Active Substance: FUROSEMIDE
  12. COCARL [Concomitant]
     Active Substance: ACETAMINOPHEN
  13. RANMARK [Concomitant]
     Active Substance: DENOSUMAB
  14. INTRALIPOS10% [Concomitant]
  15. PACLITAXEL. [Concomitant]
     Active Substance: PACLITAXEL
  16. SENNOSIDE [Concomitant]
     Active Substance: SENNOSIDES
  17. NEXIUM [Concomitant]
     Active Substance: ESOMEPRAZOLE MAGNESIUM
  18. REBAMIPIDE [Concomitant]
     Active Substance: REBAMIPIDE
  19. DENOTAS [Concomitant]
     Active Substance: CALCIUM CARBONATE\CHOLECALCIFEROL\MAGNESIUM CARBONATE
  20. AMOXICILLIN HYDRATE [Concomitant]
     Active Substance: AMOXICILLIN
  21. MAGNESIUM OXIDE. [Concomitant]
     Active Substance: MAGNESIUM OXIDE
  22. AVASTIN [Concomitant]
     Active Substance: BEVACIZUMAB
  23. LANSOPRAZOLE. [Concomitant]
     Active Substance: LANSOPRAZOLE
  24. XYLOCAINE [Concomitant]
     Active Substance: LIDOCAINE HYDROCHLORIDE
  25. GLYCEREB [Concomitant]
  26. SODIUM CHLORIDE. [Concomitant]
     Active Substance: SODIUM CHLORIDE

REACTIONS (5)
  - Peripheral sensory neuropathy [Not Recovered/Not Resolved]
  - Peripheral motor neuropathy [Not Recovered/Not Resolved]
  - Hypoaesthesia [Recovering/Resolving]
  - Pyrexia [Recovering/Resolving]
  - Facial paralysis [Recovering/Resolving]

NARRATIVE: CASE EVENT DATE: 20160112
